FAERS Safety Report 6156857-X (Version None)
Quarter: 2009Q2

REPORT INFORMATION
  Report Type: 
  Country: None (occurrence: None)
  Receive Date: 20090413
  Receipt Date: 20090128
  Transmission Date: 20091009
  Serious: No
  Sender: FDA-Public Use
  Company Number: 2009BM000025

PATIENT
  Age: 35 Year
  Sex: Female
  Weight: 84.3237 kg

DRUGS (2)
  1. KUVAN [Suspect]
     Indication: PHENYLKETONURIA
     Dosage: 1700 MG;QD;PO; 1700 MG;QD; PO
     Route: 048
     Dates: start: 20071024, end: 20080101
  2. KUVAN [Suspect]
     Indication: PHENYLKETONURIA
     Dosage: 1700 MG;QD;PO; 1700 MG;QD; PO
     Route: 048
     Dates: start: 20080516, end: 20090206

REACTIONS (1)
  - UPPER RESPIRATORY TRACT INFECTION [None]
